FAERS Safety Report 8591591-8 (Version None)
Quarter: 2012Q3

REPORT INFORMATION
  Report Type: 
  Country: None (occurrence: None)
  Receive Date: 20120814
  Receipt Date: 20120810
  Transmission Date: 20120928
  Serious: No
  Sender: FDA-Public Use
  Company Number: US-PFIZER INC-2012195967

PATIENT
  Age: 42 Year
  Sex: Female
  Weight: 94.785 kg

DRUGS (1)
  1. NICOTROL [Suspect]
     Indication: SMOKING CESSATION THERAPY
     Dosage: UNK, EVERY HOUR
     Dates: start: 20120810

REACTIONS (2)
  - EYE DISCHARGE [None]
  - NASAL DISCOMFORT [None]
